FAERS Safety Report 9606807 (Version 2)
Quarter: 2014Q2

REPORT INFORMATION
  Report Type: Spontaneous
  Country: US (occurrence: US)
  Receive Date: 20131008
  Receipt Date: 20140519
  Transmission Date: 20141212
  Serious: Yes (Other)
  Sender: FDA-Public Use
  Company Number: US-AMGEN-USASP2013064251

PATIENT
  Age: 78 Year
  Sex: Female

DRUGS (17)
  1. PROLIA [Suspect]
     Indication: OSTEOPOROSIS POSTMENOPAUSAL
     Dosage: 1 ML, UNK
     Route: 058
     Dates: start: 20130313
  2. METFORMIN [Concomitant]
     Dosage: 500 MG, BID
  3. JANUVIA [Concomitant]
     Dosage: 100 MG, QD
  4. NEXIUM                             /01479302/ [Concomitant]
     Dosage: 40 MG, QD
  5. SOTALOL                            /00371502/ [Concomitant]
     Dosage: 120 MG, BID
  6. SYNTHROID [Concomitant]
     Dosage: 150 MUG, QD
  7. HYDROCHLOROTHIAZIDE [Concomitant]
     Dosage: 0.5 MG, QD
  8. LIPITOR [Concomitant]
     Dosage: 40 MG, QD
  9. ABC PLUS SENIOR [Concomitant]
  10. CALCIUM [Concomitant]
     Dosage: 500 MG, 2 BID
  11. VITAMIN D3 [Concomitant]
     Dosage: 400 IU, BID
  12. GINKGO BILOBA [Concomitant]
     Dosage: 120 MG, QD
  13. CENTRUM SILVER                     /02363801/ [Concomitant]
  14. FORTEO [Concomitant]
  15. NORCO [Concomitant]
  16. NORVASC [Concomitant]
     Dosage: 5 MG, QD
  17. LOSARTAN + HIDROCLOROTIAZIDA [Concomitant]

REACTIONS (4)
  - Atrial fibrillation [Unknown]
  - Mobility decreased [Recovered/Resolved]
  - Pain [Unknown]
  - Back pain [Not Recovered/Not Resolved]
